FAERS Safety Report 12798949 (Version 1)
Quarter: 2016Q3

REPORT INFORMATION
  Report Type: Spontaneous
  Country: BR (occurrence: BR)
  Receive Date: 20160930
  Receipt Date: 20160930
  Transmission Date: 20161109
  Serious: Yes (Other)
  Sender: FDA-Public Use
  Company Number: BR-PFIZER INC-2016377214

PATIENT
  Age: 66 Year
  Sex: Female

DRUGS (3)
  1. SUTENT [Suspect]
     Active Substance: SUNITINIB MALATE
     Indication: METASTATIC RENAL CELL CARCINOMA
     Dosage: 50 MG, DAILY
     Dates: start: 2016, end: 20160901
  2. LOSARTAN. [Concomitant]
     Active Substance: LOSARTAN
  3. ATENOLOL. [Concomitant]
     Active Substance: ATENOLOL

REACTIONS (6)
  - Pruritus [Recovering/Resolving]
  - Rash [Recovered/Resolved]
  - Skin exfoliation [Recovered/Resolved]
  - Fall [Unknown]
  - Dysentery [Recovered/Resolved]
  - Vomiting [Recovered/Resolved]

NARRATIVE: CASE EVENT DATE: 2016
